FAERS Safety Report 20017973 (Version 2)
Quarter: 2022Q1

REPORT INFORMATION
  Report Type: Other
  Country: US (occurrence: None)
  Receive Date: 20211101
  Receipt Date: 20220204
  Transmission Date: 20220424
  Serious: Yes (Hospitalization, Other)
  Sender: FDA-Public Use
  Company Number: US-ROCHE-2944013

PATIENT
  Age: 58 Year
  Sex: Male
  Weight: 83.990 kg

DRUGS (4)
  1. OCREVUS [Suspect]
     Active Substance: OCRELIZUMAB
     Indication: Primary progressive multiple sclerosis
     Dosage: YES
     Route: 042
     Dates: start: 20190502
  2. OCREVUS [Suspect]
     Active Substance: OCRELIZUMAB
     Indication: Secondary progressive multiple sclerosis
     Route: 042
     Dates: start: 200704
  3. RITUXAN [Suspect]
     Active Substance: RITUXIMAB
     Indication: Primary progressive multiple sclerosis
     Route: 065
     Dates: end: 201704
  4. RITUXAN [Suspect]
     Active Substance: RITUXIMAB
     Indication: Secondary progressive multiple sclerosis

REACTIONS (6)
  - COVID-19 [Recovered/Resolved]
  - Antibody test abnormal [Unknown]
  - Off label use [Unknown]
  - Illness [Recovered/Resolved]
  - Oxygen saturation decreased [Recovered/Resolved]
  - Multiple sclerosis relapse [Recovered/Resolved]

NARRATIVE: CASE EVENT DATE: 20180201
